FAERS Safety Report 12680712 (Version 5)
Quarter: 2018Q4

REPORT INFORMATION
  Report Type: Report from Study
  Country: CA (occurrence: CA)
  Receive Date: 20160824
  Receipt Date: 20181210
  Transmission Date: 20190204
  Serious: Yes (Other)
  Sender: FDA-Public Use
  Company Number: CA-OTSUKA-2016_020044

PATIENT
  Age: 33 Year
  Sex: Male

DRUGS (7)
  1. TOLVAPTAN [Suspect]
     Active Substance: TOLVAPTAN
     Dosage: 60 MG, QD
     Route: 065
     Dates: start: 20160815
  2. TOLVAPTAN [Suspect]
     Active Substance: TOLVAPTAN
     Dosage: UNK (IN THE EVENING)
     Route: 065
     Dates: start: 20160820
  3. TOLVAPTAN [Suspect]
     Active Substance: TOLVAPTAN
     Indication: CONGENITAL CYSTIC KIDNEY DISEASE
     Dosage: 45 MG, QD (IN THE MORNING)
     Route: 048
     Dates: start: 20160807, end: 20160810
  4. TOLVAPTAN [Suspect]
     Active Substance: TOLVAPTAN
     Dosage: 15 MG, QD (IN THE EVENING)
     Route: 048
     Dates: start: 20160807, end: 20160810
  5. TOLVAPTAN [Suspect]
     Active Substance: TOLVAPTAN
     Dosage: UNK (IN THE MORNING)
     Route: 065
     Dates: start: 20160815
  6. TOLVAPTAN [Suspect]
     Active Substance: TOLVAPTAN
     Dosage: UNK (IN THE EVENING)
     Route: 065
     Dates: start: 20160815
  7. TOLVAPTAN [Suspect]
     Active Substance: TOLVAPTAN
     Dosage: UNK (IN THE MORNING)
     Route: 065
     Dates: start: 20160820

REACTIONS (8)
  - Nocturia [Unknown]
  - Thirst [Unknown]
  - Sleep disorder [Unknown]
  - Polydipsia [Unknown]
  - Paternal exposure during pregnancy [Recovered/Resolved]
  - Renal cyst ruptured [Recovering/Resolving]
  - Pain [Recovering/Resolving]
  - Joint swelling [Recovered/Resolved]

NARRATIVE: CASE EVENT DATE: 20160810
